FAERS Safety Report 8444876-X (Version None)
Quarter: 2012Q2

REPORT INFORMATION
  Report Type: 
  Country: None (occurrence: None)
  Receive Date: 20120618
  Receipt Date: 20120614
  Transmission Date: 20120825
  Serious: Yes (Other)
  Sender: FDA-Public Use
  Company Number: PHHY2012BR037480

PATIENT
  Sex: Female

DRUGS (4)
  1. DIOVAN [Suspect]
     Indication: HYPERTENSION
     Dosage: 1 DF (320 MG), DAILY
     Dates: end: 20110101
  2. MODURETIC 5-50 [Concomitant]
     Indication: HYPERTENSION
     Dosage: 2 CAPSULES (25/2.5), DAILY
     Route: 048
     Dates: start: 20120401
  3. DIOVAN [Suspect]
     Dosage: 2 DF (160 MG ), DAILY
  4. VITAMIN E [Concomitant]
     Indication: ANTICOAGULANT THERAPY
     Dosage: 1 CAPSULE, DAILY
     Route: 048
     Dates: start: 20110401

REACTIONS (3)
  - OCULAR HYPERAEMIA [None]
  - EYE HAEMORRHAGE [None]
  - BLOOD PRESSURE INADEQUATELY CONTROLLED [None]
